FAERS Safety Report 4367948-8 (Version None)
Quarter: 2004Q2

REPORT INFORMATION
  Report Type: 
  Country: None (occurrence: None)
  Receive Date: 20040601
  Receipt Date: 20040517
  Transmission Date: 20050107
  Serious: Yes (Other)
  Sender: FDA-Public Use
  Company Number: CHPA2002US06747

PATIENT
  Age: 37 Year
  Sex: Female
  Weight: 70.3 kg

DRUGS (1)
  1. CLEARASIL VANISHING CREAM (NCH)(BENZOYL PEROXIDE) CREAM [Suspect]
     Dosage: TOPICAL
     Route: 061

REACTIONS (4)
  - APPLICATION SITE DISCOLOURATION [None]
  - APPLICATION SITE REACTION [None]
  - APPLICATION SITE SCAR [None]
  - PIGMENTATION DISORDER [None]
